FAERS Safety Report 12162644 (Version 1)
Quarter: 2016Q1

REPORT INFORMATION
  Report Type: Spontaneous
  Country: US (occurrence: US)
  Receive Date: 20160309
  Receipt Date: 20160309
  Transmission Date: 20160526
  Serious: No
  Sender: FDA-Public Use
  Company Number: US-PFIZER INC-2016128167

PATIENT
  Sex: Female

DRUGS (2)
  1. AMLODIPINE BESILATE [Suspect]
     Active Substance: AMLODIPINE BESYLATE
     Indication: VASCULITIS
     Dosage: 10 MG, 1X/DAY
     Route: 048
     Dates: start: 201402
  2. TIZANIDINE. [Suspect]
     Active Substance: TIZANIDINE
     Indication: FIBROMYALGIA
     Dosage: 5 MG, 1X/DAY
     Route: 048
     Dates: start: 2015

REACTIONS (3)
  - Somnolence [Unknown]
  - Dizziness [Unknown]
  - Product use issue [Unknown]
